FAERS Safety Report 17457935 (Version 1)
Quarter: 2020Q1

REPORT INFORMATION
  Report Type: Spontaneous
  Country: FR (occurrence: FR)
  Receive Date: 20200225
  Receipt Date: 20200225
  Transmission Date: 20200409
  Serious: Yes (Hospitalization)
  Sender: FDA-Public Use
  Company Number: FR-JNJFOC-20200232911

PATIENT
  Age: 32 Year
  Sex: Male
  Weight: 130 kg

DRUGS (2)
  1. ARIXTRA [Suspect]
     Active Substance: FONDAPARINUX SODIUM
     Indication: LIMB IMMOBILISATION
     Dosage: 1 DOSAGE FORM, 1/DAY
     Route: 058
     Dates: start: 20200131
  2. TRAMADOL HYDROCHLORIDE. [Suspect]
     Active Substance: TRAMADOL HYDROCHLORIDE
     Indication: HEADACHE
     Dosage: UNK UNK, 1/DAY
     Route: 048
     Dates: start: 20200131

REACTIONS (3)
  - Vertigo [Recovered/Resolved]
  - Behaviour disorder [Recovered/Resolved]
  - Malaise [Recovered/Resolved]

NARRATIVE: CASE EVENT DATE: 20200131
